FAERS Safety Report 10347537 (Version 3)
Quarter: 2014Q3

REPORT INFORMATION
  Report Type: Spontaneous
  Country: JP (occurrence: JP)
  Receive Date: 20140729
  Receipt Date: 20140814
  Transmission Date: 20150326
  Serious: Yes (Death)
  Sender: FDA-Public Use
  Company Number: JP-MALLINCKRODT-T201305050

PATIENT
  Age: 72 Year
  Sex: Male
  Weight: 65.5 kg

DRUGS (17)
  1. METHADONE [Suspect]
     Active Substance: METHADONE HYDROCHLORIDE
     Indication: CANCER PAIN
     Dosage: 5 MG (15 MG DAILY DOSE)
     Route: 048
     Dates: start: 20131030, end: 20131110
  2. TAKEPRON [Concomitant]
     Active Substance: LANSOPRAZOLE
     Dosage: 30 MG, UNK
     Route: 048
     Dates: start: 20131024
  3. MAGMITT [Concomitant]
     Active Substance: MAGNESIUM OXIDE
     Dosage: 990 MG, UNK
     Route: 048
  4. BETANAMIN [Concomitant]
     Dosage: 20 MG, UNK
     Route: 048
     Dates: start: 20131212, end: 20140110
  5. RINESTERON [Concomitant]
     Dosage: 4 MG, UNK
     Route: 048
     Dates: start: 20131230, end: 20140110
  6. ARASENA A [Concomitant]
     Active Substance: VIDARABINE
     Dosage: UNK, UNK
     Route: 061
     Dates: start: 20131111, end: 20131115
  7. METHADONE [Suspect]
     Active Substance: METHADONE HYDROCHLORIDE
     Dosage: 10 MG (20 MG DAILY DOSE)
     Route: 048
     Dates: start: 20131111, end: 20131202
  8. NAIXAN [Concomitant]
     Active Substance: NAPROXEN SODIUM
     Dosage: 400 MG, UNK
     Route: 048
     Dates: start: 20131024
  9. VALTREX [Concomitant]
     Active Substance: VALACYCLOVIR HYDROCHLORIDE
     Dosage: 3000 MG, UNK
     Route: 048
     Dates: start: 20131102, end: 20131107
  10. TAMSULOSIN [Concomitant]
     Active Substance: TAMSULOSIN
     Dosage: 0.2 MG, UNK
     Route: 048
  11. DRAMAMINE [Concomitant]
     Active Substance: DIMENHYDRINATE
     Dosage: 15 MG, UNK
     Route: 048
     Dates: start: 20131101
  12. EVAMYL [Concomitant]
     Active Substance: LORMETAZEPAM
     Dosage: 0.5 MG, UNK
     Route: 048
     Dates: start: 20131104, end: 20131106
  13. RINESTERON [Concomitant]
     Dosage: 2 MG, UNK
     Route: 048
     Dates: start: 20131213, end: 20131229
  14. METHADONE [Suspect]
     Active Substance: METHADONE HYDROCHLORIDE
     Dosage: 15 MG (30 MG DAILY DOSE)
     Route: 048
     Dates: start: 20131203, end: 20140110
  15. RISPERDAL [Concomitant]
     Active Substance: RISPERIDONE
     Dosage: 1 MG, UNK
     Route: 048
     Dates: start: 20131023
  16. LANTUS [Concomitant]
     Active Substance: INSULIN GLARGINE
     Dosage: 22 DF, UNK
     Route: 051
  17. BETANAMIN [Concomitant]
     Dosage: 10 MG, UNK
     Route: 048
     Dates: start: 20131203, end: 20131211

REACTIONS (6)
  - Blood alkaline phosphatase increased [Not Recovered/Not Resolved]
  - Somnolence [Not Recovered/Not Resolved]
  - Nausea [Recovered/Resolved]
  - Malignant melanoma [Fatal]
  - Vomiting [Recovered/Resolved]
  - Insomnia [Recovered/Resolved]

NARRATIVE: CASE EVENT DATE: 20131101
